FAERS Safety Report 7679769-9 (Version None)
Quarter: 2011Q3

REPORT INFORMATION
  Report Type: 
  Country: None (occurrence: None)
  Receive Date: 20110812
  Receipt Date: 20110801
  Transmission Date: 20111222
  Serious: Yes (Hospitalization)
  Sender: FDA-Public Use
  Company Number: US-JNJFOC-20110804759

PATIENT
  Age: 11 Year
  Sex: Female

DRUGS (2)
  1. INFLIXIMAB [Suspect]
     Indication: CROHN'S DISEASE
     Route: 042
     Dates: start: 20090114
  2. INFLIXIMAB [Suspect]
     Route: 042
     Dates: start: 20080205

REACTIONS (1)
  - ANAL STENOSIS [None]
